FAERS Safety Report 9666287 (Version 1)
Quarter: 2013Q4

REPORT INFORMATION
  Report Type: Spontaneous
  Country: DE (occurrence: DE)
  Receive Date: 20131104
  Receipt Date: 20131104
  Transmission Date: 20140711
  Serious: Yes (Other)
  Sender: FDA-Public Use
  Company Number: DE-009507513-1310DEU015400

PATIENT
  Age: 70 Year
  Sex: Male

DRUGS (1)
  1. TAFLOTAN [Suspect]
     Indication: GLAUCOMA
     Dosage: UNK
     Dates: start: 2007, end: 2012

REACTIONS (3)
  - Visual field defect [Not Recovered/Not Resolved]
  - Visual acuity reduced [Not Recovered/Not Resolved]
  - Macular oedema [Not Recovered/Not Resolved]
